FAERS Safety Report 14301819 (Version 3)
Quarter: 2018Q2

REPORT INFORMATION
  Report Type: Spontaneous
  Country: US (occurrence: US)
  Receive Date: 20171219
  Receipt Date: 20180419
  Transmission Date: 20180711
  Serious: Yes (Other)
  Sender: FDA-Public Use
  Company Number: US-SUPERNUS PHARMACEUTICALS, INC.-2017SUP00268

PATIENT
  Sex: Female

DRUGS (1)
  1. OXTELLAR XR [Suspect]
     Active Substance: OXCARBAZEPINE
     Indication: SEIZURE
     Dosage: 600 MG, 3X/DAY

REACTIONS (11)
  - Musculoskeletal discomfort [Unknown]
  - Blood sodium decreased [Unknown]
  - Hospitalisation [Unknown]
  - Vitamin D decreased [Unknown]
  - Malaise [Unknown]
  - Seizure [Unknown]
  - Arthralgia [Unknown]
  - Fatigue [Unknown]
  - Off label use [Unknown]
  - Anticonvulsant drug level increased [Unknown]
  - Vitamin B12 increased [Unknown]

NARRATIVE: CASE EVENT DATE: 2017
